FAERS Safety Report 9033605 (Version 5)
Quarter: 2013Q3

REPORT INFORMATION
  Report Type: Spontaneous
  Country: AR (occurrence: AR)
  Receive Date: 20130128
  Receipt Date: 20130912
  Transmission Date: 20140515
  Serious: Yes (Other)
  Sender: FDA-Public Use
  Company Number: AR-AMGEN-ARGSP2013005847

PATIENT
  Age: 52 Year
  Sex: Female

DRUGS (4)
  1. ENBREL [Suspect]
     Indication: RHEUMATOID ARTHRITIS
     Dosage: 50 MG, WEEKLY
     Route: 058
     Dates: start: 201109, end: 201301
  2. ENBREL [Suspect]
     Dosage: 50 MG, WEEKLY
     Route: 058
     Dates: start: 2013
  3. LEVOTHYROXINE [Concomitant]
     Dosage: UNK
  4. METHOTREXATE [Concomitant]
     Dosage: UNK

REACTIONS (3)
  - Thyroid cancer [Recovered/Resolved]
  - Rheumatoid arthritis [Not Recovered/Not Resolved]
  - Drug ineffective [Unknown]
